FAERS Safety Report 10064515 (Version 1)
Quarter: 2014Q2

REPORT INFORMATION
  Report Type: Spontaneous
  Country: JP (occurrence: JP)
  Receive Date: 20140408
  Receipt Date: 20140408
  Transmission Date: 20141212
  Serious: Yes (Hospitalization)
  Sender: FDA-Public Use
  Company Number: JP-TEVA-474199ISR

PATIENT
  Age: 44 Year
  Sex: Female

DRUGS (2)
  1. CISPLATIN [Suspect]
     Indication: UTERINE CANCER
     Route: 041
     Dates: start: 200912, end: 201004
  2. DOXORUBICIN [Suspect]
     Indication: UTERINE CANCER
     Route: 042
     Dates: start: 200912, end: 201004

REACTIONS (1)
  - Cardiomyopathy [Recovering/Resolving]
